FAERS Safety Report 9794632 (Version 2)
Quarter: 2014Q1

REPORT INFORMATION
  Report Type: Spontaneous
  Country: US (occurrence: US)
  Receive Date: 20140102
  Receipt Date: 20140128
  Transmission Date: 20141002
  Serious: Yes (Other)
  Sender: FDA-Public Use
  Company Number: US-GLAXOSMITHKLINE-A1055052A

PATIENT
  Age: 64 Year
  Sex: Female

DRUGS (1)
  1. ADVAIR HFA [Suspect]
     Indication: RESPIRATORY DISTRESS
     Route: 065
     Dates: start: 20120620

REACTIONS (1)
  - Respiratory distress [Unknown]
